FAERS Safety Report 12154870 (Version 2)
Quarter: 2016Q1

REPORT INFORMATION
  Report Type: Spontaneous
  Country: JP (occurrence: JP)
  Receive Date: 20160307
  Receipt Date: 20160330
  Transmission Date: 20160526
  Serious: Yes (Other)
  Sender: FDA-Public Use
  Company Number: PHJP2016JP004299

PATIENT
  Age: 19 Year
  Sex: Female

DRUGS (2)
  1. NEORAL [Suspect]
     Active Substance: CYCLOSPORINE
     Indication: PSORIASIS
     Dosage: 125 MG, UNK
     Route: 048
     Dates: start: 20150714, end: 20150810
  2. NEORAL [Suspect]
     Active Substance: CYCLOSPORINE
     Dosage: 100 MG, UNK
     Route: 048
     Dates: start: 20150818, end: 20150828

REACTIONS (2)
  - Strabismus [Recovered/Resolved]
  - Procedural vomiting [Recovered/Resolved]

NARRATIVE: CASE EVENT DATE: 20150810
